FAERS Safety Report 25420916 (Version 1)
Quarter: 2025Q2

REPORT INFORMATION
  Report Type: Spontaneous
  Country: BG (occurrence: BG)
  Receive Date: 20250611
  Receipt Date: 20250611
  Transmission Date: 20250717
  Serious: Yes (Other)
  Sender: ABBVIE
  Company Number: None

PATIENT
  Age: 36 Year
  Sex: Female
  Weight: 48 kg

DRUGS (4)
  1. RINVOQ [Suspect]
     Active Substance: UPADACITINIB
     Indication: Rheumatoid arthritis
     Route: 048
     Dates: start: 2021
  2. BISOPROLOL FUMARATE [Concomitant]
     Active Substance: BISOPROLOL FUMARATE
     Indication: Product used for unknown indication
     Route: 048
  3. Noliprel Bi-forte [Concomitant]
     Indication: Product used for unknown indication
     Route: 048
  4. ACECLOFENAC [Concomitant]
     Active Substance: ACECLOFENAC
     Indication: Product used for unknown indication
     Dates: end: 2023

REACTIONS (5)
  - Urinary tract infection [Unknown]
  - Genital infection female [Unknown]
  - Oligomenorrhoea [Not Recovered/Not Resolved]
  - Ovarian cyst [Recovered/Resolved]
  - Amenorrhoea [Recovered/Resolved]

NARRATIVE: CASE EVENT DATE: 20220101
